FAERS Safety Report 21911689 (Version 6)
Quarter: 2023Q2

REPORT INFORMATION
  Report Type: Report from Study
  Country: PL (occurrence: PL)
  Receive Date: 20230125
  Receipt Date: 20230516
  Transmission Date: 20230721
  Serious: Yes (Hospitalization)
  Sender: FDA-Public Use
  Company Number: PL-PFIZER INC-PV202300010357

PATIENT
  Age: 67 Year
  Sex: Female
  Weight: 54 kg

DRUGS (6)
  1. ENCORAFENIB [Suspect]
     Active Substance: ENCORAFENIB
     Indication: Colorectal cancer metastatic
     Dosage: 300 MG, DAILY
     Route: 048
     Dates: start: 20221024, end: 20230116
  2. LEUCOVORIN [Suspect]
     Active Substance: LEUCOVORIN
     Indication: Colorectal cancer metastatic
     Dosage: 400 MG EVERY 2 WEEKS
     Route: 042
     Dates: start: 20221024, end: 20230116
  3. OXALIPLATIN [Suspect]
     Active Substance: OXALIPLATIN
     Indication: Colorectal cancer metastatic
     Dosage: 85 MG EVERY 2 WEEKS (OXALIPLATYNA)
     Route: 042
     Dates: start: 20221024, end: 20230116
  4. FLUOROURACIL [Suspect]
     Active Substance: FLUOROURACIL
     Indication: Colorectal cancer metastatic
     Dosage: 400 MG EVERY 2 WEEKS (FLUOROURACYL BOLUS)
     Route: 040
     Dates: start: 20221024, end: 20230116
  5. FLUOROURACIL [Suspect]
     Active Substance: FLUOROURACIL
     Dosage: 2400 MG EVERY 2 WEEKS (FLUOROURACYL INFUSION)
     Route: 042
     Dates: start: 20221024, end: 20230116
  6. CETUXIMAB [Suspect]
     Active Substance: CETUXIMAB
     Indication: Colorectal cancer metastatic
     Dosage: 500 MG, CYCLIC EVERY 2 WEEKS (INJECTION)
     Route: 042
     Dates: start: 20221024, end: 20221128

REACTIONS (1)
  - Anaemia [Recovered/Resolved]

NARRATIVE: CASE EVENT DATE: 20230116
